FAERS Safety Report 20457821 (Version 1)
Quarter: 2022Q1

REPORT INFORMATION
  Report Type: Spontaneous
  Country: US (occurrence: US)
  Receive Date: 20220210
  Receipt Date: 20220210
  Transmission Date: 20220423
  Serious: Yes (Hospitalization, Other)
  Sender: FDA-Public Use
  Company Number: US-TEVA-2022-US-2006491

PATIENT
  Age: 52 Year
  Sex: Female

DRUGS (5)
  1. CLONAZEPAM [Suspect]
     Active Substance: CLONAZEPAM
     Dosage: 2 MILLIGRAM DAILY;
     Route: 065
  2. CLONAZEPAM [Suspect]
     Active Substance: CLONAZEPAM
     Dosage: DECREASED DOSE
     Route: 065
  3. CLONAZEPAM [Suspect]
     Active Substance: CLONAZEPAM
     Dosage: 1.5 MILLIGRAM DAILY; ONE TABLET TID FOR THREE DAYS, ONE TABLET BID FOR THREE DAYS, ONE TABLET QD FOR
     Route: 048
     Dates: start: 20220127
  4. BUSPIRONE HYDROCHLORIDE [Suspect]
     Active Substance: BUSPIRONE HYDROCHLORIDE
     Route: 065
  5. CLONAZEPAM [Suspect]
     Active Substance: CLONAZEPAM
     Route: 065

REACTIONS (17)
  - Cardiac arrest [Recovered/Resolved]
  - Hospitalisation [Recovered/Resolved]
  - Seizure [Unknown]
  - Diabetes mellitus [Unknown]
  - Impaired gastric emptying [Unknown]
  - Loss of consciousness [Unknown]
  - Insomnia [Not Recovered/Not Resolved]
  - Fear of death [Unknown]
  - Injury [Unknown]
  - Illness [Unknown]
  - Anxiety [Unknown]
  - Fear [Unknown]
  - Psychological abuse [Unknown]
  - Product tampering [Unknown]
  - Product prescribing error [Unknown]
  - Product availability issue [Unknown]
  - Product dispensing issue [Unknown]

NARRATIVE: CASE EVENT DATE: 20220120
